FAERS Safety Report 7472435-4 (Version None)
Quarter: 2011Q2

REPORT INFORMATION
  Report Type: 
  Country: None (occurrence: None)
  Receive Date: 20110511
  Receipt Date: 20110503
  Transmission Date: 20111010
  Serious: Yes (Death, Hospitalization)
  Sender: FDA-Public Use
  Company Number: FR-MILLENNIUM PHARMACEUTICALS, INC.-2011-00068

PATIENT

DRUGS (14)
  1. VASTAREL [Concomitant]
     Dosage: UNK
     Route: 048
     Dates: start: 20100613
  2. VELCADE [Suspect]
     Indication: MULTIPLE MYELOMA
     Dosage: 2.5 MG, UNK
     Route: 042
     Dates: start: 20100512, end: 20110215
  3. DEXAMETHASONE SODIUM POSPHATE [Suspect]
     Indication: MULTIPLE MYELOMA
     Dosage: 20 MG, UNK
     Route: 048
     Dates: start: 20100512, end: 20110215
  4. TREANDA [Suspect]
     Indication: MULTIPLE MYELOMA
     Dosage: 136.25 MG, UNK
     Route: 042
     Dates: start: 20100512, end: 20110201
  5. ZELITREX                           /01269701/ [Concomitant]
     Indication: PROPHYLAXIS
     Dosage: 500 MG, UNK
     Route: 048
     Dates: start: 20100609
  6. ZOPHREN                            /00955301/ [Concomitant]
     Indication: PROPHYLAXIS
     Dosage: 8 MG, UNK
     Route: 042
     Dates: start: 20100512
  7. ACUILIX                            /01133601/ [Concomitant]
     Indication: HYPERTENSION
     Dosage: 20 MG, UNK
     Route: 048
     Dates: end: 20101231
  8. MOVICOL                            /01053601/ [Concomitant]
     Indication: PROPHYLAXIS
     Dosage: UNK
     Route: 048
     Dates: start: 20100609, end: 20101231
  9. GRANOCYTE                          /01003403/ [Concomitant]
     Indication: PROPHYLAXIS
     Dosage: UNK
     Route: 058
     Dates: start: 20100716
  10. OMIX [Concomitant]
     Indication: PROSTATIC ADENOMA
     Dosage: 0.4 MG, UNK
     Route: 048
     Dates: end: 20101231
  11. ALLOPURINOL [Concomitant]
     Indication: HYPERURICAEMIA
     Dosage: 200 MG, UNK
     Route: 048
  12. NEORECORMON [Concomitant]
     Indication: ANAEMIA
     Dosage: UNK
     Route: 058
     Dates: start: 20100512
  13. MOPRAL                             /00661201/ [Concomitant]
     Indication: PROPHYLAXIS
     Dosage: 20 MG, UNK
     Route: 048
     Dates: start: 20100519
  14. DURAGESIC-100 [Concomitant]
     Dosage: UNK
     Route: 062
     Dates: start: 20101130, end: 20101231

REACTIONS (2)
  - LUNG DISORDER [None]
  - FEBRILE NEUTROPENIA [None]
